FAERS Safety Report 20947142 (Version 1)
Quarter: 2022Q2

REPORT INFORMATION
  Report Type: Spontaneous
  Country: NL (occurrence: None)
  Receive Date: 20220610
  Receipt Date: 20220610
  Transmission Date: 20220721
  Serious: Yes (Hospitalization)
  Sender: FDA-Public Use
  Company Number: None

PATIENT
  Sex: Male
  Weight: 61 kg

DRUGS (4)
  1. RITUXIMAB [Suspect]
     Active Substance: RITUXIMAB
     Indication: Sjogren^s syndrome
     Dosage: EENMALIG 2X1000MG
     Route: 042
     Dates: start: 200701
  2. PREDNISONE [Concomitant]
     Active Substance: PREDNISONE
     Dosage: TABLET, 5 MG (MILLIGRAM)
  3. AZATHIOPRINE [Concomitant]
     Active Substance: AZATHIOPRINE
     Dosage: ONBEKEND
  4. MYCOPHENOLATE MOFETIL [Concomitant]
     Active Substance: MYCOPHENOLATE MOFETIL
     Dosage: TABLET, 500 MG (MILLIGRAM)
     Route: 048

REACTIONS (1)
  - Respiratory tract infection [Not Recovered/Not Resolved]
